FAERS Safety Report 5652147-X (Version None)
Quarter: 2008Q1

REPORT INFORMATION
  Report Type: 
  Country: None (occurrence: None)
  Receive Date: 20080131
  Receipt Date: 20071120
  Transmission Date: 20080703
  Serious: No
  Sender: FDA-Public Use
  Company Number: US200711004866

PATIENT
  Age: 36 Year
  Sex: Male

DRUGS (5)
  1. BYETTA [Suspect]
     Indication: TYPE 2 DIABETES MELLITUS
     Dosage: 5 UG, 2/D, SUBCUTANEOUS ; 10 UG, 2/D, SUBCUTANEOUS
     Route: 058
     Dates: start: 20071001, end: 20071101
  2. BYETTA [Suspect]
     Indication: TYPE 2 DIABETES MELLITUS
     Dosage: 5 UG, 2/D, SUBCUTANEOUS ; 10 UG, 2/D, SUBCUTANEOUS
     Route: 058
     Dates: start: 20071120
  3. METFORMIN HCL [Concomitant]
  4. AVANDIA [Concomitant]
  5. ENALAPRIL MALEATE [Concomitant]

REACTIONS (5)
  - INJECTION SITE URTICARIA [None]
  - OEDEMA PERIPHERAL [None]
  - PARAESTHESIA [None]
  - PRURITUS [None]
  - WEIGHT DECREASED [None]
